FAERS Safety Report 24553611 (Version 1)
Quarter: 2024Q4

REPORT INFORMATION
  Report Type: Report from Study
  Country: GB (occurrence: GB)
  Receive Date: 20241028
  Receipt Date: 20241028
  Transmission Date: 20250115
  Serious: No
  Sender: ROCHE
  Company Number: GB-IPSEN Group, Research and Development-2023-22910

PATIENT
  Sex: Male

DRUGS (1)
  1. NUTROPIN [Suspect]
     Active Substance: SOMATROPIN
     Indication: Growth hormone deficiency
     Route: 058
     Dates: start: 2015

REACTIONS (4)
  - Headache [Unknown]
  - Product dose omission issue [Unknown]
  - Product supply issue [Unknown]
  - Intentional dose omission [Unknown]
